FAERS Safety Report 8309497-8 (Version None)
Quarter: 2012Q2

REPORT INFORMATION
  Report Type: 
  Country: None (occurrence: None)
  Receive Date: 20120425
  Receipt Date: 20120419
  Transmission Date: 20120825
  Serious: No
  Sender: FDA-Public Use
  Company Number: US-PFIZER INC-2012097811

PATIENT
  Sex: Female
  Weight: 61 kg

DRUGS (2)
  1. DILANTIN [Suspect]
     Dosage: UNK
     Route: 048
  2. DILANTIN [Suspect]
     Indication: CONVULSION
     Dosage: THREE 100MG CAPSULES
     Route: 048
     Dates: start: 19900101

REACTIONS (1)
  - ANTICONVULSANT DRUG LEVEL ABNORMAL [None]
